FAERS Safety Report 5123525-2 (Version None)
Quarter: 2006Q4

REPORT INFORMATION
  Report Type: 
  Country: None (occurrence: None)
  Receive Date: 20061010
  Receipt Date: 20060928
  Transmission Date: 20070319
  Serious: Yes (Other)
  Sender: FDA-Public Use
  Company Number: US-JNJFOC-20060803271

PATIENT
  Sex: Male
  Weight: 74.39 kg

DRUGS (37)
  1. REMICADE [Suspect]
     Route: 042
  2. REMICADE [Suspect]
     Route: 042
  3. REMICADE [Suspect]
     Route: 042
  4. REMICADE [Suspect]
     Route: 042
  5. REMICADE [Suspect]
     Route: 042
  6. REMICADE [Suspect]
     Route: 042
  7. REMICADE [Suspect]
     Route: 042
  8. REMICADE [Suspect]
     Route: 042
  9. REMICADE [Suspect]
     Route: 042
  10. REMICADE [Suspect]
     Route: 042
  11. REMICADE [Suspect]
     Route: 042
  12. REMICADE [Suspect]
     Route: 042
  13. REMICADE [Suspect]
     Route: 042
  14. REMICADE [Suspect]
     Route: 042
  15. REMICADE [Suspect]
     Route: 042
  16. REMICADE [Suspect]
     Route: 042
  17. REMICADE [Suspect]
     Route: 042
  18. REMICADE [Suspect]
     Route: 042
  19. REMICADE [Suspect]
     Route: 042
  20. REMICADE [Suspect]
     Route: 042
  21. REMICADE [Suspect]
     Route: 042
  22. REMICADE [Suspect]
     Route: 042
  23. REMICADE [Suspect]
     Route: 042
  24. REMICADE [Suspect]
     Route: 042
  25. REMICADE [Suspect]
     Route: 042
  26. REMICADE [Suspect]
     Route: 042
  27. REMICADE [Suspect]
     Route: 042
  28. REMICADE [Suspect]
     Route: 042
  29. REMICADE [Suspect]
     Dosage: ^DOUBLE DOSE^
     Route: 042
  30. REMICADE [Suspect]
     Indication: CROHN'S DISEASE
     Route: 042
  31. FLAGYL [Concomitant]
     Indication: CROHN'S DISEASE
  32. FLAGYL [Concomitant]
     Indication: PROPHYLAXIS
  33. B 12 [Concomitant]
     Indication: COLECTOMY
  34. VITAMIN D [Concomitant]
     Dosage: 50000.0 UNITS
  35. FOSAMAX [Concomitant]
  36. OSCAL D [Concomitant]
  37. XANAX [Concomitant]

REACTIONS (2)
  - MORPHOEA [None]
  - SYSTEMIC LUPUS ERYTHEMATOSUS [None]
